FAERS Safety Report 19287753 (Version 1)
Quarter: 2021Q2

REPORT INFORMATION
  Report Type: Spontaneous
  Country: GB (occurrence: GB)
  Receive Date: 20210521
  Receipt Date: 20210521
  Transmission Date: 20210717
  Serious: Yes (Other)
  Sender: FDA-Public Use
  Company Number: GB-TEVA-2021-GB-1912699

PATIENT
  Age: 80 Year
  Sex: Female
  Weight: 77 kg

DRUGS (10)
  1. TIMODINE [Concomitant]
     Dosage: 2 DOSAGE FORMS DAILY; APPLY TWICE A DAY
     Dates: start: 20210401, end: 20210411
  2. TRAMADOL. [Concomitant]
     Active Substance: TRAMADOL
     Indication: PAIN
     Dosage: WHEN REQUIRED, 1 DOSAGE FORMS
     Dates: start: 20200910
  3. SERTRALINE [Concomitant]
     Active Substance: SERTRALINE HYDROCHLORIDE
     Dosage: 1 DOSAGE FORMS DAILY; IN THE MORNING
     Dates: start: 20200910
  4. ROPINIROLE. [Suspect]
     Active Substance: ROPINIROLE
     Dosage: 250MCG
     Route: 065
     Dates: start: 20210507
  5. PARACETAMOL [Concomitant]
     Active Substance: ACETAMINOPHEN
     Indication: PAIN
     Dosage: TAKE 1 OR 2, UP TO 4 TIMES A DAY
     Dates: start: 20200910
  6. QUININE [Concomitant]
     Active Substance: QUININE
     Dosage: 1 DOSAGE FORMS DAILY; AT NIGHT
     Dates: start: 20210222, end: 20210322
  7. QVAR [Concomitant]
     Active Substance: BECLOMETHASONE DIPROPIONATE
     Dosage: 4 DOSAGE FORMS DAILY;
     Route: 055
     Dates: start: 20200910
  8. ROPINIROLE. [Concomitant]
     Active Substance: ROPINIROLE
     Dosage: 250 MICROGRAM DAILY; FOR 2 DAYS
     Route: 065
     Dates: start: 20210427
  9. FUROSEMIDE. [Concomitant]
     Active Substance: FUROSEMIDE
     Dosage: 1 DOSAGE FORMS DAILY; AS A WATER TABLET FOR 2 WEEKS AND STOP
     Dates: start: 20210413
  10. SALBUTAMOL [Concomitant]
     Active Substance: ALBUTEROL
     Dosage: TO HELP WITH BREATHING, 2 DOSAGE FORMS
     Dates: start: 20200910, end: 20210507

REACTIONS (1)
  - Swelling of eyelid [Recovered/Resolved]

NARRATIVE: CASE EVENT DATE: 20210507
